FAERS Safety Report 5140958-9 (Version None)
Quarter: 2006Q4

REPORT INFORMATION
  Report Type: 
  Country: None (occurrence: None)
  Receive Date: 20061027
  Receipt Date: 20061027
  Transmission Date: 20070319
  Serious: Yes (Life-Threatening)
  Sender: FDA-Public Use
  Company Number: None

PATIENT
  Age: 62 Year
  Sex: Female
  Weight: 113.3993 kg

DRUGS (1)
  1. ZOLOFT [Suspect]
     Indication: MAJOR DEPRESSION
     Dosage: 200 MGM   Q HS  PO
     Route: 048
     Dates: end: 20061017

REACTIONS (6)
  - DISEASE RECURRENCE [None]
  - DRUG INEFFECTIVE [None]
  - HOMICIDAL IDEATION [None]
  - MAJOR DEPRESSION [None]
  - SUICIDAL IDEATION [None]
  - THERAPEUTIC RESPONSE UNEXPECTED WITH DRUG SUBSTITUTION [None]
